FAERS Safety Report 25045686 (Version 1)
Quarter: 2025Q1

REPORT INFORMATION
  Report Type: Spontaneous
  Country: US (occurrence: None)
  Receive Date: 20250305
  Receipt Date: 20250305
  Transmission Date: 20250409
  Serious: Yes (Other)
  Sender: FDA-CTU
  Company Number: None

PATIENT
  Age: 60 Year
  Sex: Female

DRUGS (1)
  1. NEMLUVIO [Suspect]
     Active Substance: NEMOLIZUMAB-ILTO
     Indication: Dermatitis atopic
     Route: 058
     Dates: start: 20250204, end: 20250305

REACTIONS (4)
  - Abdominal pain upper [None]
  - Dry skin [None]
  - Nasal ulcer [None]
  - Rash macular [None]

NARRATIVE: CASE EVENT DATE: 20250305
